FAERS Safety Report 6209444-9 (Version None)
Quarter: 2009Q2

REPORT INFORMATION
  Report Type: 
  Country: None (occurrence: None)
  Receive Date: 20090601
  Receipt Date: 20090518
  Transmission Date: 20091009
  Serious: Yes (Other)
  Sender: FDA-Public Use
  Company Number: CN-ROCHE-633151

PATIENT
  Age: 73 Year
  Sex: Male

DRUGS (5)
  1. CAPECITABINE [Suspect]
     Dosage: 2000MG IN THE MORNING AND 1500MG IN THE EVENING. GIVEN FOR 14 DAYS IN THE 1ST AND 2ND COURSE.
     Route: 048
     Dates: start: 20070930
  2. CAPECITABINE [Interacting]
     Route: 048
     Dates: end: 20080201
  3. WARFARIN SODIUM [Interacting]
     Indication: DRUG USE FOR UNKNOWN INDICATION
     Dosage: GIVEN AFTER MECHANICAL MITRAL VALVE REPLACEMENT.
     Route: 048
     Dates: start: 19980101
  4. WARFARIN SODIUM [Interacting]
     Route: 048
  5. OXALIPLATIN [Concomitant]
     Dosage: GIVED ON THE 1ST DAY OF EACH COURSE.
     Dates: start: 20070930

REACTIONS (8)
  - BLOOD BLISTER [None]
  - DRUG INTERACTION [None]
  - ECCHYMOSIS [None]
  - EPISTAXIS [None]
  - HAEMATURIA [None]
  - INTERNATIONAL NORMALISED RATIO INCREASED [None]
  - MELAENA [None]
  - SHOCK HAEMORRHAGIC [None]
